FAERS Safety Report 4861906-2 (Version None)
Quarter: 2005Q4

REPORT INFORMATION
  Report Type: 
  Country: None (occurrence: None)
  Receive Date: 20051129
  Receipt Date: 20050804
  Transmission Date: 20060501
  Serious: Yes (Hospitalization, Other)
  Sender: FDA-Public Use
  Company Number: WAES 0508USA01203

PATIENT
  Sex: Male

DRUGS (4)
  1. ZETIA [Suspect]
     Indication: HYPERCHOLESTEROLAEMIA
     Dosage: 10MG, DAILY; PO
     Route: 048
     Dates: start: 20050208, end: 20050727
  2. CRESTOR [Suspect]
     Indication: HYPERCHOLESTEROLAEMIA
     Dosage: 10 MG, DAILY; PO
     Route: 047
     Dates: start: 20050208, end: 20050708
  3. METOPROLOL [Concomitant]
  4. WARFARIN SODIUM [Concomitant]

REACTIONS (1)
  - RHABDOMYOLYSIS [None]
